FAERS Safety Report 5241275-9 (Version None)
Quarter: 2007Q1

REPORT INFORMATION
  Report Type: 
  Country: None (occurrence: None)
  Receive Date: 20070220
  Receipt Date: 20070212
  Transmission Date: 20070707
  Serious: Yes (Death)
  Sender: FDA-Public Use
  Company Number: US-JNJFOC-20070202027

PATIENT
  Age: 62 Year
  Sex: Male

DRUGS (11)
  1. PREZISTA [Suspect]
     Route: 048
  2. PREZISTA [Suspect]
     Indication: HIV INFECTION
     Route: 048
  3. RITONAVIR [Suspect]
     Indication: HIV INFECTION
     Route: 048
  4. MK-0518 [Concomitant]
     Indication: HIV INFECTION
     Route: 048
  5. EPZICOM [Concomitant]
     Indication: HIV INFECTION
     Route: 048
  6. TENOFOVIR DISOPROXIL FUMARATE [Concomitant]
     Indication: HIV INFECTION
     Route: 065
  7. INSULIN [Concomitant]
     Route: 065
  8. GLUCERNA [Concomitant]
     Route: 065
  9. CARTIA XT [Concomitant]
     Route: 065
  10. MARINOL [Concomitant]
     Route: 065
  11. ENALAPRIL MALEATE [Concomitant]
     Route: 065

REACTIONS (1)
  - CORONARY ARTERY DISEASE [None]
